FAERS Safety Report 13893088 (Version 1)
Quarter: 2017Q3

REPORT INFORMATION
  Report Type: Spontaneous
  Country: US (occurrence: US)
  Receive Date: 20170822
  Receipt Date: 20170822
  Transmission Date: 20171127
  Serious: No
  Sender: FDA-Public Use
  Company Number: US-ROCHE-1183990

PATIENT
  Sex: Male
  Weight: 85.7 kg

DRUGS (5)
  1. FOLINIC ACID [Concomitant]
     Active Substance: LEUCOVORIN
     Indication: OESOPHAGEAL CARCINOMA
     Route: 042
     Dates: start: 20120124
  2. OXALIPLATIN. [Concomitant]
     Active Substance: OXALIPLATIN
     Indication: OESOPHAGEAL CARCINOMA
     Route: 042
     Dates: start: 20120124
  3. ZOMETA [Concomitant]
     Active Substance: ZOLEDRONIC ACID
     Indication: BONE LESION
     Route: 042
     Dates: start: 20120124
  4. 5-FLUOROURACIL [Concomitant]
     Active Substance: FLUOROURACIL
     Indication: OESOPHAGEAL CARCINOMA
     Route: 042
     Dates: start: 20120124
  5. HERCEPTIN [Suspect]
     Active Substance: TRASTUZUMAB
     Indication: OESOPHAGEAL CARCINOMA
     Route: 042
     Dates: start: 20120124

REACTIONS (4)
  - Neoplasm malignant [Unknown]
  - Nausea [Unknown]
  - Fatigue [Unknown]
  - Drug ineffective [Unknown]
